FAERS Safety Report 4483364-2 (Version None)
Quarter: 2004Q4

REPORT INFORMATION
  Report Type: 
  Country: None (occurrence: None)
  Receive Date: 20041020
  Receipt Date: 20040929
  Transmission Date: 20050328
  Serious: Yes (Other)
  Sender: FDA-Public Use
  Company Number: JP_041004696

PATIENT
  Age: 56 Year
  Sex: Male

DRUGS (6)
  1. ONCOVIN [Suspect]
     Indication: DIFFUSE LARGE B-CELL LYMPHOMA STAGE IV
     Dosage: 0.7 MG OTHER
     Route: 050
  2. CYCLOPHOSPHAMIDE [Concomitant]
  3. DOXORUBICIN HCL [Concomitant]
  4. PREDNISOLONE [Concomitant]
  5. RITUXIMAB [Concomitant]
  6. ETOPOSIDE [Concomitant]

REACTIONS (3)
  - DIALYSIS [None]
  - RECURRENT CANCER [None]
  - RENAL FAILURE ACUTE [None]
